APPROVED DRUG PRODUCT: CARDIZEM LA
Active Ingredient: DILTIAZEM HYDROCHLORIDE
Strength: 300MG
Dosage Form/Route: TABLET, EXTENDED RELEASE;ORAL
Application: N021392 | Product #004 | TE Code: AB
Applicant: BAUSCH HEALTH US LLC
Approved: Feb 6, 2003 | RLD: Yes | RS: No | Type: RX